FAERS Safety Report 7756796-4 (Version None)
Quarter: 2011Q3

REPORT INFORMATION
  Report Type: 
  Country: None (occurrence: None)
  Receive Date: 20110916
  Receipt Date: 20110909
  Transmission Date: 20111222
  Serious: Yes (Hospitalization, Other)
  Sender: FDA-Public Use
  Company Number: PHHY2011BE80492

PATIENT
  Age: 80 Year
  Sex: Male

DRUGS (9)
  1. VALSARTAN [Concomitant]
  2. AMIODARONE HCL [Interacting]
     Dosage: 200 MG/DAY
  3. SPIRONOLACTONE [Concomitant]
  4. ASPIRIN [Concomitant]
  5. BUMETANIDE [Concomitant]
     Dosage: 1 MG/DAY
  6. INSULIN [Concomitant]
  7. HEPARIN [Concomitant]
  8. SIMVASTATIN [Suspect]
     Dosage: 40 MG, QD
  9. BISOPROLOL FUMARATE [Concomitant]

REACTIONS (8)
  - DRUG INTERACTION [None]
  - OEDEMA PERIPHERAL [None]
  - MUSCULAR WEAKNESS [None]
  - RHABDOMYOLYSIS [None]
  - POLYNEUROPATHY [None]
  - ATRIAL FIBRILLATION [None]
  - PAIN [None]
  - RENAL IMPAIRMENT [None]
